FAERS Safety Report 8940905 (Version 1)
Quarter: 2012Q4

REPORT INFORMATION
  Report Type: 
  Country: CA (occurrence: CA)
  Receive Date: 20121203
  Receipt Date: 20121203
  Transmission Date: 20130627
  Serious: Yes (Life-Threatening, Hospitalization)
  Sender: FDA-Public Use
  Company Number: CA-ASTRAZENECA-2012SE89946

PATIENT
  Age: 79 Year
  Sex: Male
  Weight: 113.4 kg

DRUGS (5)
  1. CRESTOR [Suspect]
     Route: 048
  2. CLONIDINE [Concomitant]
  3. FUROSEMIDE [Concomitant]
  4. SYNTHROID [Concomitant]
  5. TEVA-AMLODIPINE [Concomitant]

REACTIONS (1)
  - Dyspnoea [Recovered/Resolved]
